FAERS Safety Report 8834616 (Version 5)
Quarter: 2014Q1

REPORT INFORMATION
  Report Type: Report from Study
  Country: JP (occurrence: JP)
  Receive Date: 20121010
  Receipt Date: 20140211
  Transmission Date: 20141002
  Serious: Yes (Hospitalization, Other)
  Sender: FDA-Public Use
  Company Number: JP-VERTEX PHARMACEUTICAL INC.-2012-022443

PATIENT
  Age: 76 Year
  Sex: Male

DRUGS (19)
  1. VX-950 (TELAPREVIR) [Suspect]
     Indication: CHRONIC HEPATITIS C
     Dosage: 1500 MG, QD
     Route: 048
     Dates: start: 20120810, end: 20120816
  2. VX-950 (TELAPREVIR) [Suspect]
     Dosage: 750 MG, QD
     Route: 048
     Dates: start: 20120903
  3. RIBAVIRIN [Suspect]
     Indication: CHRONIC HEPATITIS C
     Dosage: 600 MG, QD
     Route: 048
     Dates: start: 20120810, end: 20120823
  4. RIBAVIRIN [Suspect]
     Dosage: 400 MG, QD
     Route: 048
     Dates: start: 20120824, end: 20120918
  5. RIBAVIRIN [Suspect]
     Dosage: 200 MG, QD
     Route: 048
     Dates: start: 20120919
  6. PEGINTERFERON ALFA-2B [Suspect]
     Indication: CHRONIC HEPATITIS C
     Dosage: 1.5 ?G/KG, QW
     Route: 058
     Dates: start: 20120810, end: 20120810
  7. PEGINTERFERON ALFA-2B [Suspect]
     Dosage: 0.8 ?G/KG, QW
     Route: 058
     Dates: start: 20120817, end: 20120817
  8. PEGINTERFERON ALFA-2B [Suspect]
     Dosage: 1.3 ?G/KG, QW
     Route: 058
     Dates: start: 20120824, end: 20120824
  9. PEGINTERFERON ALFA-2B [Suspect]
     Dosage: 1.0 ?G/KG, QW
     Route: 058
     Dates: start: 20120831
  10. URSO [Concomitant]
     Dosage: 600 MG, QD
     Route: 048
  11. DIOVAN [Concomitant]
     Dosage: 80 MG, QD
     Route: 048
  12. AMLODIPINE [Concomitant]
     Dosage: 5 MG, QD
     Route: 048
  13. SINGULAIR [Concomitant]
     Dosage: 10 MG, QD
     Route: 048
  14. GAMOFA [Concomitant]
     Dosage: 20 MG, QD
     Route: 048
  15. ALLEGRA [Concomitant]
     Dosage: 120 MG, QD
     Route: 048
     Dates: start: 20120821
  16. DOGMATYL [Concomitant]
     Dosage: 150 MG, QD
     Route: 048
     Dates: start: 20120907
  17. ALOSITOL [Concomitant]
     Dosage: 100 MG, QD
     Route: 048
     Dates: start: 20120815, end: 20120817
  18. VITAMEDIN [Concomitant]
     Dosage: 1 BOTTLE, QD
     Route: 042
     Dates: start: 20120815, end: 20130819
  19. ACMAIN [Concomitant]
     Dosage: 500 ML, QD
     Route: 042
     Dates: start: 20120815, end: 20120819

REACTIONS (5)
  - Depression [Not Recovered/Not Resolved]
  - Renal disorder [Recovered/Resolved]
  - Hyperuricaemia [Recovering/Resolving]
  - Drug eruption [Recovered/Resolved]
  - Haemoglobin decreased [Not Recovered/Not Resolved]
